FAERS Safety Report 7824153 (Version 9)
Quarter: 2012Q4

REPORT INFORMATION
  Report Type: 
  Country: US (occurrence: US)
  Receive Date: 20110223
  Receipt Date: 20121218
  Transmission Date: 20130627
  Serious: Yes (Hospitalization, Disabling, Other)
  Sender: FDA-Public Use
  Company Number: US-009507513-1102USA02524

PATIENT

DRUGS (3)
  1. FOSAMAX [Suspect]
     Indication: OSTEOPOROSIS
     Dosage: 10 mg, qd
     Route: 048
     Dates: start: 199703, end: 20010828
  2. FOSAMAX [Suspect]
     Dosage: 70 mg, QW
     Route: 048
     Dates: start: 200109, end: 20070328
  3. PHENOBARBITAL [Concomitant]
     Indication: CONVULSION
     Dosage: UNK
     Dates: end: 200907

REACTIONS (39)
  - Jaw disorder [Unknown]
  - Hand fracture [Unknown]
  - Tibia fracture [Unknown]
  - Cataract [Unknown]
  - Osteonecrosis of jaw [Unknown]
  - Ankle fracture [Unknown]
  - Ulcer [Unknown]
  - Gingival abscess [Unknown]
  - Hiatus hernia [Unknown]
  - Rectal polyp [Unknown]
  - Pulmonary pneumatocele [Unknown]
  - Contusion [Unknown]
  - Contusion [Unknown]
  - Ligament sprain [Unknown]
  - Haemorrhoids [Unknown]
  - Hand fracture [Unknown]
  - Migraine [Unknown]
  - Urinary incontinence [Unknown]
  - Behcet^s syndrome [Unknown]
  - Tooth fracture [Unknown]
  - Dental caries [Unknown]
  - Osteopenia [Unknown]
  - Tenosynovitis stenosans [Unknown]
  - Fall [Unknown]
  - Radius fracture [Recovered/Resolved]
  - Hepatic cyst [Unknown]
  - Osteoporosis postmenopausal [Unknown]
  - Hypercholesterolaemia [Unknown]
  - Barrett^s oesophagus [Unknown]
  - Peripheral vascular disorder [Unknown]
  - Road traffic accident [Unknown]
  - Hand fracture [Unknown]
  - Gingivitis [Unknown]
  - Odynophagia [Unknown]
  - Abdominal pain upper [Recovered/Resolved]
  - Gastritis [Recovered/Resolved]
  - Oesophagitis ulcerative [Unknown]
  - Gastrooesophageal reflux disease [Unknown]
  - Back pain [Unknown]
